FAERS Safety Report 13500525 (Version 1)
Quarter: 2017Q2

REPORT INFORMATION
  Report Type: Spontaneous
  Country: US (occurrence: US)
  Receive Date: 20170501
  Receipt Date: 20170501
  Transmission Date: 20170830
  Serious: Yes (Death, Hospitalization, Other)
  Sender: FDA-Public Use
  Company Number: US-TEVA-725659USA

PATIENT
  Sex: Male

DRUGS (3)
  1. ENOXAPARIN [Suspect]
     Active Substance: ENOXAPARIN
     Dates: start: 20161226
  2. WARFARIN [Suspect]
     Active Substance: WARFARIN
     Dosage: 5 MILLIGRAM DAILY;
  3. ENOXAPARIN [Suspect]
     Active Substance: ENOXAPARIN
     Indication: PULMONARY EMBOLISM
     Dosage: 100 MG/1 ML
     Route: 065
     Dates: start: 20161226

REACTIONS (6)
  - Rectal fissure [Fatal]
  - Haemorrhage [Unknown]
  - Vessel perforation [Fatal]
  - Abdominal pain [Unknown]
  - Atrial fibrillation [Unknown]
  - Abdominal wall haematoma [Fatal]

NARRATIVE: CASE EVENT DATE: 20161226
